FAERS Safety Report 12534275 (Version 1)
Quarter: 2016Q3

REPORT INFORMATION
  Report Type: Spontaneous
  Country: GB (occurrence: GB)
  Receive Date: 20160706
  Receipt Date: 20160706
  Transmission Date: 20161109
  Serious: Yes (Life-Threatening, Hospitalization, Disabling, Congenital Anomaly, Other)
  Sender: FDA-Public Use
  Company Number: GB-ABBVIE-16P-167-1669311-00

PATIENT
  Age: 1 Hour
  Sex: Male

DRUGS (1)
  1. EPILIM [Suspect]
     Active Substance: VALPROATE SODIUM
     Indication: MATERNAL EXPOSURE TIMING UNSPECIFIED
     Route: 064

REACTIONS (19)
  - Dysmorphism [Unknown]
  - Autism [Unknown]
  - Foetal exposure during pregnancy [Unknown]
  - Foetal anticonvulsant syndrome [Unknown]
  - Respiratory disorder [Unknown]
  - Congenital tracheomalacia [Unknown]
  - Speech disorder developmental [Unknown]
  - Attention deficit/hyperactivity disorder [Unknown]
  - Emotional disorder [Unknown]
  - Failure to thrive [Unknown]
  - Developmental delay [Unknown]
  - Disturbance in social behaviour [Unknown]
  - Sensory disturbance [Unknown]
  - Otitis media [Unknown]
  - Grunting [Unknown]
  - Transposition of the great vessels [Unknown]
  - Hypermobility syndrome [Unknown]
  - Learning disability [Unknown]
  - Streptococcal infection [Unknown]

NARRATIVE: CASE EVENT DATE: 20070423
